FAERS Safety Report 6507670 (Version 3)
Quarter: 2020Q3

REPORT INFORMATION
  Report Type: Report from Study
  Country: US (occurrence: US)
  Receive Date: 20071218
  Receipt Date: 20080520
  Transmission Date: 20201105
  Serious: Yes (Other)
  Sender: FDA-Public Use
  Company Number: US-JNJFOC-20071200977

PATIENT
  Age: 58 Year
  Sex: Male

DRUGS (4)
  1. PROPULSID [Suspect]
     Active Substance: CISAPRIDE
     Indication: GASTROINTESTINAL DISORDER
     Dosage: THERAPY STARTED PRIOR TO ENROLLMENT INTO THE STUDY
     Route: 048
  2. ZELNORM [Concomitant]
     Active Substance: TEGASEROD MALEATE
     Route: 048
  3. REGLAN [Concomitant]
     Active Substance: METOCLOPRAMIDE HYDROCHLORIDE
     Route: 048
  4. PROPULSID [Suspect]
     Active Substance: CISAPRIDE
     Route: 048

REACTIONS (1)
  - Electrocardiogram QT prolonged [Recovered/Resolved]

NARRATIVE: CASE EVENT DATE: 20070130
